FAERS Safety Report 17638350 (Version 3)
Quarter: 2020Q2

REPORT INFORMATION
  Report Type: Spontaneous
  Country: JP (occurrence: JP)
  Receive Date: 20200407
  Receipt Date: 20200415
  Transmission Date: 20200713
  Serious: Yes (Hospitalization)
  Sender: FDA-Public Use
  Company Number: JP-JNJFOC-20200341870

PATIENT
  Age: 68 Year
  Sex: Male

DRUGS (11)
  1. SERENACE [Concomitant]
     Active Substance: HALOPERIDOL
  2. PENTONA                            /01263204/ [Concomitant]
  3. BELSOMRA [Concomitant]
     Active Substance: SUVOREXANT
     Route: 048
  4. EVOCALCET [Concomitant]
     Active Substance: EVOCALCET
     Route: 048
  5. INVEGA [Suspect]
     Active Substance: PALIPERIDONE
     Indication: SCHIZOPHRENIA
     Dosage: OFF-LABEL USE 11 PALIPERIDONE: 3 MG
     Route: 048
     Dates: end: 20200320
  6. LUNESTA [Concomitant]
     Active Substance: ESZOPICLONE
     Route: 048
  7. LORATADINE. [Concomitant]
     Active Substance: LORATADINE
     Route: 048
  8. ACETAMINOPHEN. [Concomitant]
     Active Substance: ACETAMINOPHEN
     Route: 065
  9. AKINETON [Concomitant]
     Active Substance: BIPERIDEN HYDROCHLORIDE
     Route: 065
  10. SODIUM VALPROATE [Concomitant]
     Active Substance: VALPROATE SODIUM
     Route: 048
  11. FOSRENOL [Concomitant]
     Active Substance: LANTHANUM CARBONATE
     Route: 048

REACTIONS (4)
  - Depressed level of consciousness [Recovered/Resolved]
  - Pyrexia [Recovered/Resolved]
  - Off label use [Unknown]
  - Contraindicated product administered [Unknown]

NARRATIVE: CASE EVENT DATE: 20200318
